FAERS Safety Report 11610885 (Version 1)
Quarter: 2015Q4

REPORT INFORMATION
  Report Type: Spontaneous
  Country: US (occurrence: None)
  Receive Date: 20151007
  Receipt Date: 20151007
  Transmission Date: 20160304
  Serious: Yes (Death)
  Sender: FDA-Public Use
  Company Number: None

PATIENT
  Age: 48 Year
  Sex: Female
  Weight: 102.97 kg

DRUGS (9)
  1. GABAPENTIN. [Concomitant]
     Active Substance: GABAPENTIN
  2. FLUTICASONE PROPIONATE NASAL SPRAY [Concomitant]
     Active Substance: FLUTICASONE PROPIONATE
  3. HYDROCODONE/APAP 5/325MG [Concomitant]
  4. METHOCARBAMOL. [Concomitant]
     Active Substance: METHOCARBAMOL
  5. ONDANSETRON [Concomitant]
     Active Substance: ONDANSETRON
  6. ELIQUIS [Suspect]
     Active Substance: APIXABAN
     Indication: PULMONARY EMBOLISM
     Route: 048
     Dates: start: 20150819, end: 20150821
  7. PROMETHAZINE [Concomitant]
     Active Substance: PROMETHAZINE\PROMETHAZINE HYDROCHLORIDE
  8. BENZONATATE. [Concomitant]
     Active Substance: BENZONATATE
  9. RIZATRIPTAN BENZOATE. [Concomitant]
     Active Substance: RIZATRIPTAN BENZOATE

REACTIONS (1)
  - Fall [None]

NARRATIVE: CASE EVENT DATE: 20150821
